FAERS Safety Report 8436092-2 (Version None)
Quarter: 2012Q2

REPORT INFORMATION
  Report Type: 
  Country: None (occurrence: None)
  Receive Date: 20120614
  Receipt Date: 20120608
  Transmission Date: 20120825
  Serious: Yes (Other)
  Sender: FDA-Public Use
  Company Number: GB-ROCHE-1077792

PATIENT
  Sex: Female

DRUGS (10)
  1. COSOPT [Concomitant]
     Dosage: 2/0.5 % AT A DOSE OF 1 DROP TWICE PWE DAY.
  2. CO-AMILOFRUSE [Concomitant]
     Dosage: 2.5+20 MG
  3. CALCIUM CARBONATE + GLYCINE [Concomitant]
  4. LUCENTIS [Suspect]
     Indication: PRODUCT USED FOR UNKNOWN INDICATION
     Route: 050
     Dates: start: 20081006
  5. LUCENTIS [Suspect]
     Route: 050
     Dates: start: 20090622
  6. ALENDRONATE SODIUM [Concomitant]
  7. XALATAN [Concomitant]
     Dosage: 0.005% AT A DOSE OF 1 DROP ONCE A DAY.
  8. ACETAMINOPHEN [Concomitant]
  9. SIMVASTATIN [Concomitant]
  10. LACTULOSE LIQ [Concomitant]
     Dosage: 3.1-3.7 G/5ML

REACTIONS (6)
  - PNEUMONIA [None]
  - VISUAL ACUITY REDUCED [None]
  - DETACHMENT OF RETINAL PIGMENT EPITHELIUM [None]
  - CONJUNCTIVITIS [None]
  - HIP FRACTURE [None]
  - BLEPHARITIS [None]
